FAERS Safety Report 19869917 (Version 1)
Quarter: 2021Q3

REPORT INFORMATION
  Report Type: Spontaneous
  Country: AR (occurrence: AR)
  Receive Date: 20210922
  Receipt Date: 20210922
  Transmission Date: 20211014
  Serious: Yes (Other)
  Sender: FDA-Public Use
  Company Number: AR-PFIZER INC-202100929933

PATIENT
  Age: 63 Year
  Sex: Male

DRUGS (2)
  1. SUTENT [Suspect]
     Active Substance: SUNITINIB MALATE
     Indication: METASTATIC RENAL CELL CARCINOMA
     Dosage: 50 MG, CYCLIC (DAILY, SCHEME 2/1 REST)
     Dates: start: 20190902
  2. SUTENT [Suspect]
     Active Substance: SUNITINIB MALATE
     Dosage: 50 MG, CYCLIC (DAILY, SCHEME 2/1 REST)
     Dates: start: 20190902, end: 2021

REACTIONS (4)
  - Blister [Unknown]
  - Agitation [Unknown]
  - Tooth disorder [Unknown]
  - Asthenia [Unknown]

NARRATIVE: CASE EVENT DATE: 2021
